FAERS Safety Report 25046111 (Version 1)
Quarter: 2025Q1

REPORT INFORMATION
  Report Type: Spontaneous
  Country: US (occurrence: None)
  Receive Date: 20250306
  Receipt Date: 20250306
  Transmission Date: 20250409
  Serious: No
  Sender: FDA-CTU
  Company Number: None

PATIENT
  Age: 28 Year
  Sex: Male
  Weight: 100.8 kg

DRUGS (1)
  1. BRIUMVI [Suspect]
     Active Substance: UBLITUXIMAB-XIIY
     Indication: Multiple sclerosis
     Route: 041
     Dates: start: 20250305

REACTIONS (5)
  - Infusion related reaction [None]
  - Tremor [None]
  - Hot flush [None]
  - Feeling cold [None]
  - Somnolence [None]

NARRATIVE: CASE EVENT DATE: 20250305
